FAERS Safety Report 14583056 (Version 6)
Quarter: 2018Q3

REPORT INFORMATION
  Report Type: Spontaneous
  Country: FR (occurrence: FR)
  Receive Date: 20180228
  Receipt Date: 20180809
  Transmission Date: 20181010
  Serious: Yes (Hospitalization, Other)
  Sender: FDA-Public Use
  Company Number: FR-TEVA-2018-FR-860476

PATIENT
  Age: 85 Year
  Sex: Female
  Weight: 68 kg

DRUGS (10)
  1. PERINDOPRIL [Interacting]
     Active Substance: PERINDOPRIL
     Dosage: UNK, EVERY NIGHT AROUND 07:00 PM
     Route: 048
     Dates: start: 2017
  2. SPIRONOLACTONE. [Suspect]
     Active Substance: SPIRONOLACTONE
     Indication: HYPERTENSION
     Dosage: 25 MILLIGRAM DAILY; UNK UNK, 1/DAY
     Route: 065
     Dates: start: 2016
  3. ASPIRIN PROTECT [Concomitant]
     Active Substance: ASPIRIN
     Indication: STENT PLACEMENT
     Dosage: 100 MILLIGRAM DAILY; UNK
     Route: 065
  4. NEBIVOLOL. [Suspect]
     Active Substance: NEBIVOLOL
     Indication: HYPERTENSION
     Dosage: UNK
     Route: 065
  5. PERINDOPRIL [Interacting]
     Active Substance: PERINDOPRIL
     Indication: HYPERTENSION
     Dosage: 5 MILLIGRAM DAILY; UNK UNK, 1/DAY
     Route: 048
     Dates: start: 2016
  6. ASPIRIN PROTECT [Concomitant]
     Active Substance: ASPIRIN
     Indication: POSTOPERATIVE CARE
  7. ALDACTAZINE [Concomitant]
     Active Substance: ALTHIAZIDE\SPIRONOLACTONE
     Indication: HYPERTENSION
     Dosage: 1 DOSAGE FORMS DAILY; UNK
     Route: 048
     Dates: start: 2016
  8. NISISCO [Concomitant]
     Active Substance: HYDROCHLOROTHIAZIDE\VALSARTAN
     Indication: HYPERTENSION
     Dosage: UNK
     Route: 065
  9. TRAMADOL W/PARACETAMOL [Suspect]
     Active Substance: ACETAMINOPHEN\TRAMADOL
     Indication: ARTHRALGIA
     Dosage: UNK
     Route: 048
  10. RILMENIDINE [Suspect]
     Active Substance: RILMENIDINE
     Indication: HYPERTENSION
     Dosage: UNK
     Route: 048
     Dates: start: 2017

REACTIONS (23)
  - Acute kidney injury [Unknown]
  - Respiratory disorder [Unknown]
  - Labelled drug-drug interaction medication error [Unknown]
  - Nausea [Unknown]
  - Cough [Not Recovered/Not Resolved]
  - Diarrhoea [Unknown]
  - Tachycardia [Unknown]
  - Feeling hot [Unknown]
  - Product use issue [Not Recovered/Not Resolved]
  - Medication error [Unknown]
  - Arthralgia [Unknown]
  - Myalgia [Unknown]
  - Myalgia [Not Recovered/Not Resolved]
  - Vasculitis [Unknown]
  - Abdominal pain [Unknown]
  - Fatigue [Unknown]
  - Asthma [Unknown]
  - Drug ineffective [Unknown]
  - Wrong schedule [Unknown]
  - Urine output increased [Not Recovered/Not Resolved]
  - Palpitations [Unknown]
  - Dyspnoea [Unknown]
  - Nausea [Unknown]

NARRATIVE: CASE EVENT DATE: 2016
